FAERS Safety Report 6140048-2 (Version None)
Quarter: 2009Q2

REPORT INFORMATION
  Report Type: 
  Country: None (occurrence: None)
  Receive Date: 20090401
  Receipt Date: 20090323
  Transmission Date: 20091009
  Serious: No
  Sender: FDA-Public Use
  Company Number: PHHY2008FR30732

PATIENT
  Age: 94 Year
  Sex: Female

DRUGS (1)
  1. ACLASTA [Suspect]
     Dosage: 5 MG
     Route: 042

REACTIONS (2)
  - HYPOCALCAEMIA [None]
  - PYREXIA [None]
